FAERS Safety Report 7491821-X (Version None)
Quarter: 2011Q2

REPORT INFORMATION
  Report Type: 
  Country: None (occurrence: None)
  Receive Date: 20110519
  Receipt Date: 20110516
  Transmission Date: 20111010
  Serious: Yes (Disabling)
  Sender: FDA-Public Use
  Company Number: GB-MERCK-1105GBR00054

PATIENT
  Age: 64 Year
  Sex: Female
  Weight: 67 kg

DRUGS (6)
  1. COZAAR [Suspect]
     Route: 048
  2. DOXAZOSIN MESYLATE [Concomitant]
     Route: 065
  3. DOXYCYCLINE [Concomitant]
     Route: 065
     Dates: start: 20110107
  4. MINERAL OIL AND PETROLATUM, WHITE [Concomitant]
     Route: 065
     Dates: end: 20110323
  5. CARBOXYMETHYLCELLULOSE SODIUM AND GLYCERIN [Concomitant]
     Route: 065
     Dates: end: 20110415
  6. DYDROGESTERONE AND ESTRADIOL [Concomitant]
     Route: 065
     Dates: start: 20110107

REACTIONS (1)
  - DRY EYE [None]
